FAERS Safety Report 7061707-3 (Version None)
Quarter: 2010Q4

REPORT INFORMATION
  Report Type: 
  Country: None (occurrence: None)
  Receive Date: 20101026
  Receipt Date: 20101020
  Transmission Date: 20110411
  Serious: Yes (Other)
  Sender: FDA-Public Use
  Company Number: IE-ROCHE-719169

PATIENT
  Sex: Female
  Weight: 58 kg

DRUGS (1)
  1. ISOTRETINOIN [Suspect]
     Indication: ACNE
     Dosage: FREQUENCY REPORTED : DAILY
     Route: 048
     Dates: start: 20091221, end: 20100728

REACTIONS (1)
  - VENTRICULAR TACHYCARDIA [None]
